FAERS Safety Report 12917729 (Version 1)
Quarter: 2016Q4

REPORT INFORMATION
  Report Type: Spontaneous
  Country: US (occurrence: US)
  Receive Date: 20161107
  Receipt Date: 20161107
  Transmission Date: 20170207
  Serious: No
  Sender: FDA-Public Use
  Company Number: US-PFIZER INC-2016439716

PATIENT
  Age: 65 Year
  Sex: Female
  Weight: 104 kg

DRUGS (5)
  1. BUPROPION HCL [Concomitant]
     Active Substance: BUPROPION HYDROCHLORIDE
     Dosage: 200 MG, 2X/DAY, TWO 100MG TABLET IN THE MORNING AND TWO IN THE LATE AFTERNOON BEFORE EATING
     Dates: start: 20160914
  2. PRISTIQ EXTENDED-RELEASE [Suspect]
     Active Substance: DESVENLAFAXINE SUCCINATE
     Dosage: 100 MG, UNK
     Route: 048
     Dates: start: 201610
  3. BUPROPION HCL [Concomitant]
     Active Substance: BUPROPION HYDROCHLORIDE
     Indication: DEPRESSION
     Dosage: 200 MG, 2X/DAY, ONE 200MG TABLET IN THE MORNING AND ONE IN THE LATE AFTERNOON BEFORE EATING
     Dates: start: 1998
  4. VITAMIN D3 [Concomitant]
     Active Substance: CHOLECALCIFEROL
     Indication: BONE DISORDER
     Dosage: 1000 MG, DAILY, TWO 500MG CAPSULES
     Route: 048
     Dates: start: 2014
  5. PRISTIQ EXTENDED-RELEASE [Suspect]
     Active Substance: DESVENLAFAXINE SUCCINATE
     Indication: DEPRESSION
     Dosage: 50 MG, 1X/DAY, BEFORE EATING; (FOR A MONTH)
     Route: 048
     Dates: start: 20160914, end: 201610

REACTIONS (1)
  - Drug ineffective [Unknown]
